FAERS Safety Report 18187779 (Version 2)
Quarter: 2020Q4

REPORT INFORMATION
  Report Type: Spontaneous
  Country: US (occurrence: US)
  Receive Date: 20200824
  Receipt Date: 20201012
  Transmission Date: 20210113
  Serious: No
  Sender: FDA-Public Use
  Company Number: US-GLAXOSMITHKLINE-US2020AMR165264

PATIENT
  Sex: Female

DRUGS (1)
  1. ZEJULA [Suspect]
     Active Substance: NIRAPARIB
     Indication: OVARIAN CANCER
     Dosage: 200 MG, QD
     Route: 048
     Dates: start: 20200806

REACTIONS (6)
  - Ill-defined disorder [Unknown]
  - Hypertension [Unknown]
  - Vomiting [Unknown]
  - Insomnia [Unknown]
  - Nausea [Unknown]
  - Constipation [Unknown]
